FAERS Safety Report 7014564-5 (Version None)
Quarter: 2010Q3

REPORT INFORMATION
  Report Type: 
  Country: None (occurrence: None)
  Receive Date: 20100924
  Receipt Date: 20100924
  Transmission Date: 20110219
  Serious: Yes (Death)
  Sender: FDA-Public Use
  Company Number: None

PATIENT
  Age: 40 Year
  Sex: Male
  Weight: 61.2 kg

DRUGS (1)
  1. FLUCYTOSINE [Suspect]
     Indication: MENINGITIS CRYPTOCOCCAL
     Dosage: 1500MG Q6H PO
     Route: 048
     Dates: start: 20100917, end: 20100918

REACTIONS (3)
  - BRAIN DEATH [None]
  - CARDIO-RESPIRATORY ARREST [None]
  - COMA [None]
